FAERS Safety Report 22009002 (Version 1)
Quarter: 2023Q1

REPORT INFORMATION
  Report Type: Spontaneous
  Country: US (occurrence: US)
  Receive Date: 20230220
  Receipt Date: 20230220
  Transmission Date: 20230417
  Serious: No
  Sender: FDA-Public Use
  Company Number: US-JNJFOC-20230228378

PATIENT
  Age: 61 Year
  Sex: Female

DRUGS (4)
  1. XARELTO [Suspect]
     Active Substance: RIVAROXABAN
     Indication: Pulmonary fibrosis
     Route: 048
  2. XARELTO [Suspect]
     Active Substance: RIVAROXABAN
     Route: 048
  3. NINTEDANIB ESYLATE [Interacting]
     Active Substance: NINTEDANIB ESYLATE
     Indication: Pulmonary fibrosis
     Route: 048
  4. NINTEDANIB ESYLATE [Interacting]
     Active Substance: NINTEDANIB ESYLATE
     Route: 048

REACTIONS (15)
  - Urine odour abnormal [Not Recovered/Not Resolved]
  - Diarrhoea [Not Recovered/Not Resolved]
  - Decreased appetite [Unknown]
  - Eating disorder [Unknown]
  - Rash [Not Recovered/Not Resolved]
  - Weight decreased [Not Recovered/Not Resolved]
  - Taste disorder [Not Recovered/Not Resolved]
  - Drug interaction [Unknown]
  - Dizziness [Unknown]
  - Asthenia [Unknown]
  - Cough [Unknown]
  - Nausea [Unknown]
  - Irritable bowel syndrome [Unknown]
  - Off label use [Unknown]
  - Adverse event [Unknown]

NARRATIVE: CASE EVENT DATE: 20211001
